FAERS Safety Report 8540776 (Version 3)
Quarter: 2012Q4

REPORT INFORMATION
  Report Type: 
  Country: US (occurrence: US)
  Receive Date: 20120502
  Receipt Date: 20120907
  Transmission Date: 20130627
  Serious: Yes (Other)
  Sender: FDA-Public Use
  Company Number: US-BAYER-2012-041910

PATIENT
  Age: 21 Year
  Sex: Female
  Weight: 81.63 kg

DRUGS (2)
  1. YASMIN [Suspect]
     Indication: PREMENSTRUAL SYNDROME
     Dosage: UNK
     Dates: start: 1997, end: 2003
  2. ADVIL [Concomitant]
     Indication: HEADACHE
     Dosage: 2 (500 mg) tablets 2 - 3 times a week
     Route: 048

REACTIONS (7)
  - Gallbladder disorder [None]
  - Cholecystitis [None]
  - Gastric ulcer [None]
  - Injury [None]
  - Pain [None]
  - Emotional distress [None]
  - Syncope [None]
